FAERS Safety Report 4433225-X (Version None)
Quarter: 2004Q3

REPORT INFORMATION
  Report Type: 
  Country: None (occurrence: None)
  Receive Date: 20040823
  Receipt Date: 20040818
  Transmission Date: 20050211
  Serious: Yes (Disabling)
  Sender: FDA-Public Use
  Company Number: TCI2004A01742

PATIENT
  Age: 28 Year
  Sex: Female

DRUGS (4)
  1. LEUPROLIDE ACETATE [Suspect]
     Indication: BREAST OPERATION
     Dosage: 3075 MG (3.75 MG, 1 IN 28 D) SUBCUTANEOUS
     Route: 058
     Dates: start: 20040212, end: 20040407
  2. TAMOXIFEN CITRATE (TABLETS) [Concomitant]
  3. DOXORUBICIN HYDROCHLORIDE [Concomitant]
  4. CYCLOPHOSPHAMIDE [Concomitant]

REACTIONS (6)
  - ARTHRALGIA [None]
  - DIFFICULTY IN WALKING [None]
  - FATIGUE [None]
  - HYPOAESTHESIA [None]
  - PARAPLEGIA [None]
  - SENSORY DISTURBANCE [None]
